FAERS Safety Report 17580133 (Version 1)
Quarter: 2020Q1

REPORT INFORMATION
  Report Type: Spontaneous
  Country: US (occurrence: US)
  Receive Date: 20200325
  Receipt Date: 20200325
  Transmission Date: 20200409
  Serious: No
  Sender: FDA-Public Use
  Company Number: US-PFIZER INC-2020122263

PATIENT
  Age: 65 Year
  Sex: Male

DRUGS (2)
  1. TESTOSTERONE CIPIONATE [Interacting]
     Active Substance: TESTOSTERONE
     Dosage: 200 MG, EVERY 2 WEEKS
  2. ZOLOFT [Suspect]
     Active Substance: SERTRALINE HYDROCHLORIDE
     Indication: DEPRESSION
     Dosage: UNK

REACTIONS (4)
  - Loss of libido [Unknown]
  - Blood count abnormal [Unknown]
  - Blood testosterone decreased [Unknown]
  - Drug interaction [Unknown]
